FAERS Safety Report 8685235 (Version 2)
Quarter: 2012Q4

REPORT INFORMATION
  Report Type: 
  Country: CZ (occurrence: CZ)
  Receive Date: 20120726
  Receipt Date: 20120919
  Transmission Date: 20130627
  Serious: Yes (Hospitalization)
  Sender: FDA-Public Use
  Company Number: CZ-NAPPMUNDI-GBR-2012-0011036

PATIENT
  Age: 84 Year
  Sex: Female

DRUGS (5)
  1. OXYCONTIN [Suspect]
     Indication: PRODUCT USED FOR UNKNOWN INDICATION
     Dosage: 10 mg, bid
     Route: 048
     Dates: start: 20120406, end: 20120413
  2. MELOXICAM [Concomitant]
  3. CERUCAL [Concomitant]
  4. PARALEN                            /00020001/ [Concomitant]
  5. MELOVIS [Concomitant]

REACTIONS (1)
  - Drug eruption [Recovered/Resolved]
